FAERS Safety Report 10074469 (Version 1)
Quarter: 2014Q2

REPORT INFORMATION
  Report Type: Spontaneous
  Country: US (occurrence: US)
  Receive Date: 20140411
  Receipt Date: 20140411
  Transmission Date: 20141212
  Serious: No
  Sender: FDA-Public Use
  Company Number: US-SA-2013SA096727

PATIENT
  Age: 71 Year
  Sex: Male

DRUGS (2)
  1. ALLEGRA D [Suspect]
     Indication: INFLAMMATION
     Dosage: DOSAGE- 60/120 MG
     Route: 048
  2. WELLBUTRIN [Concomitant]

REACTIONS (7)
  - Hyperhidrosis [Unknown]
  - Vomiting [Unknown]
  - Gastrointestinal disorder [Not Recovered/Not Resolved]
  - Asthenia [Not Recovered/Not Resolved]
  - Nausea [Unknown]
  - Drug dose omission [Unknown]
  - Wrong technique in drug usage process [Unknown]
